FAERS Safety Report 5165403-9 (Version None)
Quarter: 2006Q4

REPORT INFORMATION
  Report Type: 
  Country: None (occurrence: None)
  Receive Date: 20061128
  Receipt Date: 20061115
  Transmission Date: 20070319
  Serious: Yes (Other)
  Sender: FDA-Public Use
  Company Number: 2006142747

PATIENT
  Age: 46 Year
  Sex: Male

DRUGS (1)
  1. LIPITOR [Suspect]
     Indication: HYPERCHOLESTEROLAEMIA
     Dosage: 20 MG 920 MG, 1 IN 1 D) ORAL
     Route: 048
     Dates: start: 20020901

REACTIONS (2)
  - HEPATIC STEATOSIS [None]
  - TENDONITIS [None]
